FAERS Safety Report 5277768-8 (Version None)
Quarter: 2007Q1

REPORT INFORMATION
  Report Type: 
  Country: None (occurrence: None)
  Receive Date: 20070320
  Receipt Date: 20070308
  Transmission Date: 20070707
  Serious: Yes (Death, Life-Threatening, Other)
  Sender: FDA-Public Use
  Company Number: CHNY2007GB01196

PATIENT
  Age: 70 Year
  Sex: Female

DRUGS (6)
  1. HYOSCINE HYDROBROMIDE (NCH)(HYOSCINE HYDROBROMIDE) TRANS-THERAPEUTIC-S [Suspect]
     Dosage: 1 DF, Q72H, TRANSDERMAL
     Route: 062
  2. HYOSCINE HYDROBROMIDE (HYOSCINE HYDROBROMIDE) TRANS-THERAPEUTIC-SYSTEM [Suspect]
     Dosage: UNK, UNK, INTRAVENOUS
     Route: 042
     Dates: start: 20060512
  3. CEFUROXIME [Concomitant]
  4. HYDROCORTISONE [Concomitant]
  5. METRONIDAZOLE [Concomitant]
  6. VALPROATE SODIUM [Concomitant]

REACTIONS (5)
  - AGITATION [None]
  - ANAPHYLACTIC REACTION [None]
  - ANGIOEDEMA [None]
  - PYREXIA [None]
  - TACHYCARDIA [None]
